FAERS Safety Report 15823369 (Version 1)
Quarter: 2019Q1

REPORT INFORMATION
  Report Type: Spontaneous
  Country: US (occurrence: US)
  Receive Date: 20190114
  Receipt Date: 20190114
  Transmission Date: 20190417
  Serious: No
  Sender: FDA-Public Use
  Company Number: US-PFIZER INC-2019017672

PATIENT
  Age: 45 Year
  Sex: Female

DRUGS (5)
  1. DOCETAXEL. [Suspect]
     Active Substance: DOCETAXEL
     Indication: BREAST CANCER
     Dosage: UNK UNK, CYCLIC (EVERY 3 WEEKS FOR 6 CYCLES)
     Dates: start: 20050224, end: 20050616
  2. ZYRTEC [Concomitant]
     Active Substance: CETIRIZINE HYDROCHLORIDE
     Dosage: UNK
     Dates: start: 1996
  3. FLONASE [Concomitant]
     Active Substance: FLUTICASONE PROPIONATE
     Dosage: UNK
     Dates: start: 1996
  4. TAXOTERE [Suspect]
     Active Substance: DOCETAXEL
     Indication: BREAST CANCER
     Dosage: UNK UNK, CYCLIC (EVERY 3 WEEKS FOR 6 CYCLES)
  5. CYTOXAN [Concomitant]
     Active Substance: CYCLOPHOSPHAMIDE
     Dosage: UNK

REACTIONS (5)
  - Alopecia [Unknown]
  - Hair texture abnormal [Unknown]
  - Madarosis [Unknown]
  - Hair colour changes [Unknown]
  - Hair disorder [Unknown]

NARRATIVE: CASE EVENT DATE: 200502
